FAERS Safety Report 9610884 (Version 1)
Quarter: 2013Q4

REPORT INFORMATION
  Report Type: Spontaneous
  Country: DK (occurrence: IT)
  Receive Date: 20131009
  Receipt Date: 20131009
  Transmission Date: 20140711
  Serious: Yes (Other)
  Sender: FDA-Public Use
  Company Number: IT-FRI-1000049749

PATIENT
  Age: 52 Year
  Sex: Male

DRUGS (3)
  1. CITALOPRAM [Suspect]
     Dosage: 20 MG
     Route: 048
     Dates: start: 20130101, end: 20130719
  2. METHADONE [Suspect]
     Dosage: 150 MG
     Route: 048
     Dates: start: 20130101, end: 20130719
  3. LORAZEPAM [Suspect]
     Dosage: 7.5 MG
     Route: 048
     Dates: start: 20130101, end: 20130719

REACTIONS (2)
  - Syncope [Recovering/Resolving]
  - Sopor [Recovering/Resolving]
